FAERS Safety Report 24449330 (Version 1)
Quarter: 2024Q4

REPORT INFORMATION
  Report Type: Spontaneous
  Country: FR (occurrence: FR)
  Receive Date: 20241017
  Receipt Date: 20241017
  Transmission Date: 20250114
  Serious: Yes (Hospitalization)
  Sender: EXELIXIS
  Company Number: FR-IPSEN Group, Research and Development-2024-20579

PATIENT
  Age: 78 Year
  Sex: Male
  Weight: 60 kg

DRUGS (2)
  1. CABOMETYX [Suspect]
     Active Substance: CABOZANTINIB S-MALATE
     Indication: Renal cancer metastatic
     Dosage: UNK
     Route: 042
     Dates: start: 20230830, end: 20231011
  2. OPDIVO [Suspect]
     Active Substance: NIVOLUMAB
     Indication: Renal cancer metastatic
     Dosage: UNK
     Route: 042
     Dates: start: 20230830, end: 20231011

REACTIONS (3)
  - Cholestasis [Recovering/Resolving]
  - Hepatic cytolysis [Recovering/Resolving]
  - Off label use [Unknown]

NARRATIVE: CASE EVENT DATE: 20230830
